FAERS Safety Report 9849032 (Version 1)
Quarter: 2013Q4

REPORT INFORMATION
  Report Type: Spontaneous
  Country: US (occurrence: None)
  Receive Date: 20131224
  Receipt Date: 20131224
  Transmission Date: 20140711
  Serious: Yes (Other)
  Sender: FDA-Public Use
  Company Number: PHEH2013UA001004

PATIENT
  Age: 5 Year
  Sex: Male

DRUGS (3)
  1. RITALIN [Suspect]
  2. FOCALIN XR [Suspect]
     Dosage: 5 MG, ONCE DAILY, ORAL
     Route: 048
     Dates: start: 20121230
  3. ADDERALL [Suspect]

REACTIONS (5)
  - Depressed mood [None]
  - Drug ineffective [None]
  - Crying [None]
  - Emotional distress [None]
  - Disturbance in attention [None]
